FAERS Safety Report 6911242-5 (Version None)
Quarter: 2010Q3

REPORT INFORMATION
  Report Type: 
  Country: None (occurrence: None)
  Receive Date: 20100806
  Receipt Date: 20100726
  Transmission Date: 20110219
  Serious: Yes (Disabling)
  Sender: FDA-Public Use
  Company Number: PHHY2010US46190

PATIENT
  Sex: Female

DRUGS (15)
  1. RECLAST [Suspect]
     Indication: OSTEOPOROSIS
     Dosage: ONE YEARLY
     Dates: start: 20100716, end: 20100716
  2. OMEPRAZOLE [Concomitant]
     Dosage: UNK
  3. SKELAXIN [Concomitant]
     Dosage: 1/2 2 TIME DAY
  4. LEVOXYL [Concomitant]
     Dosage: 0.1 MG, DAILY
  5. LIPITOR [Concomitant]
     Dosage: 40 MG, DAILY
  6. HYDROCODONE BITARTRATE [Concomitant]
     Dosage: 75/500
  7. TOPROL-XL [Concomitant]
     Dosage: 50 MG, QD
  8. CALCIUM WITH VITAMIN D [Concomitant]
     Dosage: 2 DAILY
  9. ASPIRIN [Concomitant]
  10. ASPIRIN [Concomitant]
     Dosage: 81 MG, DAILY
  11. LUNESTA [Concomitant]
     Dosage: 3 MG, PRN
  12. AMITRIPTYLINE HYDROCHLORIDE [Concomitant]
  13. MIRALAX [Concomitant]
     Dosage: 17 G,DAILY
  14. VITAMIN D [Concomitant]
     Dosage: 50000 U, MONTHLY
  15. CALCITONIN [Concomitant]
     Dosage: DAILY

REACTIONS (3)
  - BLOOD GLUCOSE INCREASED [None]
  - HYPOAESTHESIA [None]
  - MUSCULAR WEAKNESS [None]
